FAERS Safety Report 16982823 (Version 1)
Quarter: 2019Q4

REPORT INFORMATION
  Report Type: Spontaneous
  Country: FR (occurrence: FR)
  Receive Date: 20191101
  Receipt Date: 20191101
  Transmission Date: 20200122
  Serious: Yes (Hospitalization)
  Sender: FDA-Public Use
  Company Number: FR-GLAXOSMITHKLINE-FR2019196779

PATIENT
  Age: 75 Year
  Sex: Female

DRUGS (2)
  1. NEBIVOLOL HYDROCHLORIDE [Suspect]
     Active Substance: NEBIVOLOL HYDROCHLORIDE
     Indication: TOXICITY TO VARIOUS AGENTS
     Dosage: IN TOTAL
     Route: 048
     Dates: start: 20191007, end: 20191007
  2. LAMICTAL [Suspect]
     Active Substance: LAMOTRIGINE
     Indication: TOXICITY TO VARIOUS AGENTS
     Dosage: IN TOTAL
     Route: 048
     Dates: start: 20191007, end: 20191007

REACTIONS (1)
  - Toxicity to various agents [Recovered/Resolved]

NARRATIVE: CASE EVENT DATE: 20191007
